FAERS Safety Report 20127375 (Version 1)
Quarter: 2021Q4

REPORT INFORMATION
  Report Type: Spontaneous
  Country: US (occurrence: US)
  Receive Date: 20211129
  Receipt Date: 20211129
  Transmission Date: 20220303
  Serious: No
  Sender: FDA-Public Use
  Company Number: US-ANIPHARMA-2021-US-003861

PATIENT
  Age: 71 Year
  Sex: Female
  Weight: 78.02 kg

DRUGS (2)
  1. VANCOMYCIN HYDROCHLORIDE [Suspect]
     Active Substance: VANCOMYCIN HYDROCHLORIDE
     Indication: Clostridium difficile infection
     Dosage: ONE CAPSULES FOUR TIMES DAILY
     Route: 048
     Dates: start: 20210220
  2. GLEEVEC [Concomitant]
     Active Substance: IMATINIB MESYLATE
     Route: 065
     Dates: start: 2001

REACTIONS (1)
  - Constipation [Not Recovered/Not Resolved]

NARRATIVE: CASE EVENT DATE: 20210220
